FAERS Safety Report 9478096 (Version 1)
Quarter: 2013Q3

REPORT INFORMATION
  Report Type: Spontaneous
  Country: US (occurrence: US)
  Receive Date: 20130827
  Receipt Date: 20130827
  Transmission Date: 20140515
  Serious: Yes (Other)
  Sender: FDA-Public Use
  Company Number: US-BAYER-2013-103234

PATIENT
  Age: 46 Year
  Sex: Female

DRUGS (7)
  1. GIANVI [Suspect]
  2. YAZ [Suspect]
  3. MULTIPLE VITAMINS [Concomitant]
     Route: 048
  4. HYDROCHLOROTHIAZIDE [Concomitant]
  5. VITAMIN D [Concomitant]
  6. ROCEPHIN [Concomitant]
  7. KEFLEX [Concomitant]

REACTIONS (1)
  - Deep vein thrombosis [None]
